FAERS Safety Report 4862751-4 (Version None)
Quarter: 2005Q4

REPORT INFORMATION
  Report Type: 
  Country: None (occurrence: None)
  Receive Date: 20051221
  Receipt Date: 20051212
  Transmission Date: 20060501
  Serious: Yes (Hospitalization)
  Sender: FDA-Public Use
  Company Number: 2005AC01964

PATIENT
  Age: 4 Year
  Sex: Male

DRUGS (2)
  1. BUPIVACAINE HCL [Suspect]
     Indication: LOCAL ANAESTHESIA
     Dosage: GIVEN BY PERITONSILLAR INFILTRATION. 2 TO 3 ML PER TONSIL.
  2. DEXAMETHASONE [Concomitant]
     Dosage: GIVEN INTRAOERATIVELY.
     Route: 042

REACTIONS (1)
  - FACIAL PALSY [None]
